FAERS Safety Report 7354353-5 (Version None)
Quarter: 2011Q1

REPORT INFORMATION
  Report Type: 
  Country: None (occurrence: None)
  Receive Date: 20110316
  Receipt Date: 20110304
  Transmission Date: 20110831
  Serious: Yes (Other)
  Sender: FDA-Public Use
  Company Number: JP-JNJFOC-20110303134

PATIENT
  Age: 58 Year
  Sex: Male
  Weight: 61 kg

DRUGS (30)
  1. DOXORUBICIN HCL [Suspect]
     Indication: KAPOSI'S SARCOMA
     Dosage: CYCLE 3
     Route: 042
     Dates: start: 20070820, end: 20080730
  2. DOXORUBICIN HCL [Suspect]
     Dosage: CYCLE 5
     Route: 042
     Dates: start: 20070820, end: 20080730
  3. ONCOVIN [Concomitant]
     Route: 042
     Dates: start: 20071220, end: 20080605
  4. CYLOCIDE [Concomitant]
     Route: 042
     Dates: start: 20080117, end: 20080703
  5. DOXORUBICIN HCL [Suspect]
     Dosage: CYCLE 6
     Route: 042
     Dates: start: 20070820, end: 20080730
  6. ONCOVIN [Concomitant]
     Route: 042
     Dates: start: 20071220, end: 20080605
  7. METHOTREXATE [Concomitant]
     Route: 042
     Dates: start: 20080116, end: 20080703
  8. CYLOCIDE [Concomitant]
     Route: 042
     Dates: start: 20080117, end: 20080703
  9. DOXORUBICIN HCL [Suspect]
     Dosage: CYCLE 10
     Route: 042
     Dates: start: 20070820, end: 20080730
  10. TRUVADA [Concomitant]
     Indication: HIV INFECTION
     Route: 048
  11. ADRIACIN [Concomitant]
     Route: 042
     Dates: start: 20071220, end: 20080605
  12. CYLOCIDE [Concomitant]
     Route: 042
     Dates: start: 20080117, end: 20080703
  13. LASTET [Concomitant]
     Route: 042
     Dates: start: 20080422, end: 20080424
  14. DOXORUBICIN HCL [Suspect]
     Dosage: CYCLE 4
     Route: 042
     Dates: start: 20070820, end: 20080730
  15. DOXORUBICIN HCL [Suspect]
     Dosage: CYCLE 2
     Route: 042
     Dates: start: 20070820, end: 20080730
  16. DOXORUBICIN HCL [Suspect]
     Dosage: CYCLE 7
     Route: 042
     Dates: start: 20070820, end: 20080730
  17. ENDOXAN [Concomitant]
     Route: 042
     Dates: start: 20071217, end: 20080605
  18. ADRIACIN [Concomitant]
     Route: 042
     Dates: start: 20071220, end: 20080605
  19. ONCOVIN [Concomitant]
     Route: 042
     Dates: start: 20071220, end: 20080605
  20. RITUXAN [Concomitant]
     Route: 042
     Dates: start: 20080115, end: 20080421
  21. METHOTREXATE [Concomitant]
     Route: 042
     Dates: start: 20080116, end: 20080703
  22. METHOTREXATE [Concomitant]
     Route: 042
     Dates: start: 20080116, end: 20080703
  23. DOXORUBICIN HCL [Suspect]
     Dosage: CYCLE 1
     Route: 042
     Dates: start: 20070820, end: 20080730
  24. DOXORUBICIN HCL [Suspect]
     Dosage: CYCLE 8
     Route: 042
     Dates: start: 20070820, end: 20080730
  25. DOXORUBICIN HCL [Suspect]
     Dosage: CYCLE 9
     Route: 042
     Dates: start: 20070820, end: 20080730
  26. ENDOXAN [Concomitant]
     Route: 042
     Dates: start: 20071217, end: 20080605
  27. ADRIACIN [Concomitant]
     Route: 042
     Dates: start: 20071220, end: 20080605
  28. RITUXAN [Concomitant]
     Route: 042
     Dates: start: 20080115, end: 20080421
  29. STOCRIN [Concomitant]
     Indication: HIV INFECTION
     Route: 048
  30. ENDOXAN [Concomitant]
     Route: 042
     Dates: start: 20071217, end: 20080605

REACTIONS (1)
  - PULMONARY HYPERTENSION [None]
